FAERS Safety Report 6292645-1 (Version None)
Quarter: 2009Q3

REPORT INFORMATION
  Report Type: 
  Country: None (occurrence: None)
  Receive Date: 20090731
  Receipt Date: 20090728
  Transmission Date: 20100115
  Serious: Yes (Life-Threatening, Hospitalization)
  Sender: FDA-Public Use
  Company Number: US-AMGEN-KDL354014

PATIENT
  Sex: Female
  Weight: 65.8 kg

DRUGS (9)
  1. PROCRIT [Suspect]
     Indication: ANAEMIA
     Route: 058
     Dates: start: 20090505, end: 20090615
  2. BUPRENORPHINE HYDROCHLORIDE [Concomitant]
  3. NALOXONE HYDROCHLORIDE [Concomitant]
  4. SINEMET [Concomitant]
  5. CITALOPRAM HYDROBROMIDE [Concomitant]
  6. PROPRANOLOL [Concomitant]
  7. SYNTHROID [Concomitant]
  8. FOLIC ACID [Concomitant]
  9. ALLOPURINOL [Concomitant]

REACTIONS (2)
  - RENAL FAILURE [None]
  - VAGINAL HAEMORRHAGE [None]
